FAERS Safety Report 8681460 (Version 9)
Quarter: 2013Q3

REPORT INFORMATION
  Report Type: Spontaneous
  Country: US (occurrence: US)
  Receive Date: 20120725
  Receipt Date: 20130716
  Transmission Date: 20140515
  Serious: Yes (Hospitalization, Disabling, Other)
  Sender: FDA-Public Use
  Company Number: US-009507513-1207USA007172

PATIENT
  Sex: Female
  Weight: 94.79 kg

DRUGS (7)
  1. FOSAMAX [Suspect]
     Indication: OSTEOPOROSIS
     Dosage: UNK MG, UNK
     Route: 048
     Dates: start: 2000, end: 201101
  2. FOSAMAX PLUS D [Suspect]
     Indication: OSTEOPENIA
     Dosage: 70MG/2800IU
     Route: 048
     Dates: start: 200509
  3. FOSAMAX [Suspect]
     Indication: OSTEOPENIA
     Dosage: UNK MG, UNK
     Route: 048
     Dates: start: 2000, end: 201101
  4. ALENDRONATE SODIUM [Suspect]
     Indication: OSTEOPENIA
     Dosage: 70 MG, QW
     Route: 048
     Dates: start: 200803
  5. VITAMINS (UNSPECIFIED) [Concomitant]
     Dosage: UNK
     Dates: start: 2003
  6. HORMONES (UNSPECIFIED) [Concomitant]
     Dosage: UNK
     Dates: start: 1983
  7. CALCIUM (UNSPECIFIED) (+) VITAMIN D (UNSPECIFIED) [Concomitant]

REACTIONS (86)
  - Open reduction of fracture [Unknown]
  - Intramedullary rod insertion [Unknown]
  - Internal fixation of fracture [Unknown]
  - Knee arthroplasty [Unknown]
  - Knee arthroplasty [Unknown]
  - Bone debridement [Unknown]
  - Intervertebral disc operation [Unknown]
  - Vertebroplasty [Unknown]
  - Spinal fusion surgery [Unknown]
  - Spinal laminectomy [Unknown]
  - Effusion [Unknown]
  - Spinal fusion surgery [Unknown]
  - Surgery [Unknown]
  - Internal fixation of fracture [Unknown]
  - Fracture nonunion [Unknown]
  - Osteonecrosis of jaw [Unknown]
  - Femur fracture [Unknown]
  - Femur fracture [Not Recovered/Not Resolved]
  - Adverse event [Unknown]
  - Low turnover osteopathy [Unknown]
  - Tooth extraction [Unknown]
  - Dental caries [Unknown]
  - Sleep apnoea syndrome [Unknown]
  - Pernicious anaemia [Unknown]
  - Type 2 diabetes mellitus [Unknown]
  - Asthma [Unknown]
  - Upper limb fracture [Unknown]
  - Hypothyroidism [Unknown]
  - Hypoparathyroidism [Unknown]
  - Hypertension [Unknown]
  - Hypercholesterolaemia [Unknown]
  - Joint manipulation [Unknown]
  - Elbow operation [Unknown]
  - Ligament operation [Unknown]
  - Depression [Unknown]
  - Urinary incontinence [Unknown]
  - Osteoarthritis [Unknown]
  - Fluid retention [Unknown]
  - Tendonitis [Unknown]
  - Tendonitis [Unknown]
  - Diabetes mellitus inadequate control [Not Recovered/Not Resolved]
  - Cardiovascular insufficiency [Unknown]
  - Chills [Unknown]
  - Hypoaesthesia [Unknown]
  - Increased tendency to bruise [Unknown]
  - Sinus operation [Unknown]
  - Bursitis [Unknown]
  - Paraesthesia [Unknown]
  - Visual impairment [Unknown]
  - Wound dehiscence [Unknown]
  - Osteolysis [Unknown]
  - Cellulitis [Unknown]
  - Pain [Unknown]
  - Gait disturbance [Unknown]
  - Bursitis [Not Recovered/Not Resolved]
  - Urinary tract infection [Unknown]
  - Lumbar radiculopathy [Unknown]
  - Lumbar spinal stenosis [Unknown]
  - Intervertebral disc disorder [Unknown]
  - Osteoporotic fracture [Unknown]
  - Trigger finger [Unknown]
  - Contusion [Not Recovered/Not Resolved]
  - Drug dispensing error [Unknown]
  - Fracture delayed union [Unknown]
  - Rhinitis allergic [Unknown]
  - Bronchitis [Unknown]
  - Rheumatoid arthritis [Unknown]
  - Anaemia [Unknown]
  - Fungal skin infection [Unknown]
  - Skin lesion [Unknown]
  - Urinary tract infection [Unknown]
  - Cor pulmonale acute [Unknown]
  - Cardiac failure congestive [Unknown]
  - Cardiomegaly [Unknown]
  - Hypernatraemia [Recovered/Resolved]
  - Osteogenesis imperfecta [Unknown]
  - Cardiac murmur [Unknown]
  - Scleral discolouration [Unknown]
  - Asthenia [Unknown]
  - Pyrexia [Unknown]
  - Dyspepsia [Unknown]
  - Drug ineffective [Unknown]
  - Local swelling [Unknown]
  - Back pain [Unknown]
  - Gastrooesophageal reflux disease [Unknown]
  - Oedema peripheral [Unknown]
